FAERS Safety Report 8050706 (Version 3)
Quarter: 2014Q2

REPORT INFORMATION
  Report Type: Spontaneous
  Country: CN (occurrence: CN)
  Receive Date: 20110725
  Receipt Date: 20140407
  Transmission Date: 20141212
  Serious: Yes (Hospitalization, Other)
  Sender: FDA-Public Use
  Company Number: CN-JNJFOC-20110708029

PATIENT
  Age: 29 Year
  Sex: Female
  Weight: 60 kg

DRUGS (2)
  1. SPORANOX [Suspect]
     Indication: TINEA CRURIS
     Route: 048
     Dates: start: 20110712, end: 20110712
  2. SPORANOX [Suspect]
     Indication: TINEA CRURIS
     Route: 048
     Dates: start: 20110713, end: 20110714

REACTIONS (2)
  - Chest discomfort [Recovered/Resolved]
  - Dyspnoea [Recovered/Resolved]
